FAERS Safety Report 19612669 (Version 1)
Quarter: 2021Q3

REPORT INFORMATION
  Report Type: Other
  Country: CA (occurrence: CA)
  Receive Date: 20210727
  Receipt Date: 20210727
  Transmission Date: 20211014
  Serious: Yes (Hospitalization, Other)
  Sender: FDA-Public Use
  Company Number: CA-APOTEX-2021AP020520

PATIENT
  Age: 67 Year
  Sex: Male

DRUGS (1)
  1. APO?DASATINIB [Suspect]
     Active Substance: DASATINIB
     Indication: CHRONIC MYELOID LEUKAEMIA
     Dosage: UNK, QD
     Route: 048

REACTIONS (7)
  - Right ventricular dysfunction [Unknown]
  - Cardiac failure [Unknown]
  - Condition aggravated [Unknown]
  - Atrial fibrillation [Unknown]
  - Toxic cardiomyopathy [Unknown]
  - Acute pulmonary oedema [Unknown]
  - Ventricular hypokinesia [Unknown]
